FAERS Safety Report 9608238 (Version 2)
Quarter: 2013Q4

REPORT INFORMATION
  Report Type: Spontaneous
  Country: US (occurrence: US)
  Receive Date: 20131009
  Receipt Date: 20131009
  Transmission Date: 20140711
  Serious: No
  Sender: FDA-Public Use
  Company Number: US-PURDUE-USA-2012-0093277

PATIENT
  Age: 47 Year
  Sex: Female

DRUGS (3)
  1. BUTRANS [Suspect]
     Indication: BACK PAIN
     Dosage: 20 MCG, UNK
     Route: 062
     Dates: start: 20110218, end: 201109
  2. BUTRANS [Suspect]
     Dosage: 20 MCG, UNK
     Route: 062
     Dates: start: 201110, end: 201112
  3. BUTRANS [Suspect]
     Dosage: 20 MCG, UNK
     Route: 062
     Dates: start: 201207, end: 201207

REACTIONS (8)
  - Application site ulcer [Recovered/Resolved]
  - Application site erythema [Recovered/Resolved]
  - Application site pruritus [Recovered/Resolved]
  - Application site erythema [Recovered/Resolved]
  - Application site pruritus [Recovered/Resolved]
  - Application site erythema [Recovered/Resolved]
  - Application site pruritus [Recovered/Resolved]
  - Application site perspiration [Recovered/Resolved]
